FAERS Safety Report 13836881 (Version 1)
Quarter: 2017Q3

REPORT INFORMATION
  Report Type: Spontaneous
  Country: US (occurrence: US)
  Receive Date: 20170804
  Receipt Date: 20170804
  Transmission Date: 20171127
  Serious: No
  Sender: FDA-Public Use
  Company Number: US-ROCHE-1019281

PATIENT
  Sex: Female
  Weight: 65.38 kg

DRUGS (3)
  1. VIACTIV [Concomitant]
     Active Substance: CALCIUM\VITAMIN D\VITAMIN K5
     Dosage: DOSE: 1
     Route: 048
  2. DEXILANT [Concomitant]
     Active Substance: DEXLANSOPRAZOLE
     Indication: DYSPEPSIA
     Route: 048
  3. BONIVA [Suspect]
     Active Substance: IBANDRONATE SODIUM
     Indication: OSTEOPOROSIS
     Route: 048
     Dates: start: 20110725

REACTIONS (6)
  - Headache [Recovered/Resolved]
  - Joint stiffness [Recovered/Resolved]
  - Neck pain [Unknown]
  - Vertigo positional [Unknown]
  - Dizziness postural [Unknown]
  - Hangover [Unknown]
